FAERS Safety Report 9412764 (Version 1)
Quarter: 2013Q3

REPORT INFORMATION
  Report Type: Report from Study
  Country: AR (occurrence: AR)
  Receive Date: 20130722
  Receipt Date: 20130722
  Transmission Date: 20140515
  Serious: Yes (Other)
  Sender: FDA-Public Use
  Company Number: PHHY2013AR077669

PATIENT
  Sex: Male

DRUGS (2)
  1. EXFORGE [Suspect]
     Indication: HYPERTENSION
     Dosage: 2 DF, (160 MG VALS/ 5 MG AMLO) DAILY
     Route: 048
  2. GALVUS [Suspect]
     Indication: DIABETES MELLITUS
     Dosage: 1 DF, (1000 MG UNKNOWN/ 50 MG VILDA) DAILY
     Route: 048

REACTIONS (1)
  - Arterial occlusive disease [Recovered/Resolved]
